FAERS Safety Report 5166494-1 (Version None)
Quarter: 2006Q4

REPORT INFORMATION
  Report Type: 
  Country: None (occurrence: None)
  Receive Date: 20061130
  Receipt Date: 20061130
  Transmission Date: 20070319
  Serious: Yes (Other)
  Sender: FDA-Public Use
  Company Number: None

PATIENT
  Sex: Female
  Weight: 49.8957 kg

DRUGS (2)
  1. LEVAQUIN [Suspect]
     Indication: SINUSITIS
     Dosage: 750 MG 1 PER DAY PO; 500 MG   1 PER DAY  PO
     Route: 048
     Dates: start: 20061101, end: 20061107
  2. LEVAQUIN [Suspect]
     Indication: SINUSITIS
     Dosage: 750 MG 1 PER DAY PO; 500 MG   1 PER DAY  PO
     Route: 048
     Dates: start: 20061114, end: 20061118

REACTIONS (8)
  - ABASIA [None]
  - ARTHRALGIA [None]
  - BURNING SENSATION [None]
  - EAR DISCOMFORT [None]
  - INSOMNIA [None]
  - PAIN [None]
  - PAIN IN EXTREMITY [None]
  - PARAESTHESIA [None]
